FAERS Safety Report 7455898-X (Version None)
Quarter: 2011Q2

REPORT INFORMATION
  Report Type: 
  Country: None (occurrence: None)
  Receive Date: 20110503
  Receipt Date: 20110425
  Transmission Date: 20111010
  Serious: Yes (Disabling, Other)
  Sender: FDA-Public Use
  Company Number: B0710789A

PATIENT
  Sex: Male

DRUGS (9)
  1. LAMICTAL [Suspect]
     Indication: EPILEPSY
     Dosage: 50MG PER DAY
     Route: 048
     Dates: start: 20100511, end: 20100803
  2. ALEVIATIN [Concomitant]
     Dosage: 200MG PER DAY
     Route: 048
     Dates: start: 20090901
  3. DIPHENYLHYDANTOIN [Concomitant]
  4. VALPROATE SODIUM [Concomitant]
     Route: 048
  5. LAMICTAL [Suspect]
     Dosage: 100MG PER DAY
     Route: 048
     Dates: start: 20100803, end: 20100928
  6. AKINETON [Concomitant]
     Dosage: 1MG PER DAY
     Route: 048
     Dates: start: 20060822
  7. CARBAMAZEPINE [Concomitant]
     Dosage: 800MG PER DAY
     Route: 048
     Dates: start: 20090901
  8. LAMICTAL [Suspect]
     Dosage: 50MG PER DAY
     Route: 048
     Dates: start: 20100928, end: 20101026
  9. ZYPREXA [Concomitant]
     Dosage: 1.25MG PER DAY
     Route: 048
     Dates: start: 20100316

REACTIONS (8)
  - ABNORMAL BEHAVIOUR [None]
  - ELEVATED MOOD [None]
  - AGGRESSION [None]
  - PSYCHOMOTOR HYPERACTIVITY [None]
  - HALLUCINATION, VISUAL [None]
  - PORIOMANIA [None]
  - HALLUCINATION [None]
  - OEDEMA PERIPHERAL [None]
